FAERS Safety Report 8936638 (Version 1)
Quarter: 2012Q4

REPORT INFORMATION
  Report Type: Report from Study
  Country: US (occurrence: US)
  Receive Date: 20121130
  Receipt Date: 20121130
  Transmission Date: 20130627
  Serious: Yes (Other)
  Sender: FDA-Public Use
  Company Number: US-JNJFOC-20121111671

PATIENT
  Sex: Female
  Weight: 80.29 kg

DRUGS (9)
  1. REMICADE [Suspect]
     Indication: RHEUMATOID ARTHRITIS
     Route: 042
     Dates: end: 201206
  2. ASPIRIN [Concomitant]
     Indication: ANTICOAGULANT THERAPY
     Route: 048
  3. CARDURA [Concomitant]
     Indication: BLOOD PRESSURE
     Route: 048
  4. ALTACE [Concomitant]
     Indication: BLOOD PRESSURE
     Route: 048
  5. HYDROCHLOROTHIAZIDE [Concomitant]
     Indication: BLOOD PRESSURE
     Route: 048
  6. SYNTHROID [Concomitant]
     Indication: THYROIDECTOMY
     Route: 048
     Dates: start: 1974
  7. FOLIC ACID [Concomitant]
     Indication: MEDICAL DIET
     Route: 048
  8. ICAR [Concomitant]
     Indication: ANAEMIA
     Route: 048
  9. METHOTREXATE [Concomitant]
     Indication: RHEUMATOID ARTHRITIS
     Dosage: 7 tablets of 2.5mg
     Route: 048

REACTIONS (3)
  - Diabetes mellitus [Recovering/Resolving]
  - Skin infection [Recovering/Resolving]
  - Formication [Recovering/Resolving]
